FAERS Safety Report 5679892-4 (Version None)
Quarter: 2008Q1

REPORT INFORMATION
  Report Type: 
  Country: None (occurrence: None)
  Receive Date: 20080324
  Receipt Date: 20080317
  Transmission Date: 20080703
  Serious: Yes (Hospitalization)
  Sender: FDA-Public Use
  Company Number: L08-JPN-01082-01

PATIENT
  Age: 77 Year
  Sex: Male

DRUGS (1)
  1. CARBAMAZEPINE [Suspect]
     Indication: CONVULSION

REACTIONS (13)
  - ALANINE AMINOTRANSFERASE INCREASED [None]
  - ASPARTATE AMINOTRANSFERASE INCREASED [None]
  - BLOOD GLUCOSE INCREASED [None]
  - CRYPTOGENIC ORGANISING PNEUMONIA [None]
  - DRUG RASH WITH EOSINOPHILIA AND SYSTEMIC SYMPTOMS [None]
  - ERYTHEMA MULTIFORME [None]
  - HUMAN HERPES VIRUS 6 SEROLOGY POSITIVE [None]
  - INFLUENZA LIKE ILLNESS [None]
  - LIP SWELLING [None]
  - LUNG INFILTRATION [None]
  - SCAB [None]
  - STOMATITIS [None]
  - TONSILLITIS [None]
